FAERS Safety Report 8617496 (Version 18)
Quarter: 2015Q3

REPORT INFORMATION
  Report Type: Report from Study
  Country: CA (occurrence: CA)
  Receive Date: 20120615
  Receipt Date: 20150825
  Transmission Date: 20151125
  Serious: Yes (Hospitalization, Other)
  Sender: FDA-Public Use
  Company Number: CA-ROCHE-1075267

PATIENT
  Age: 60 Year
  Sex: Female
  Weight: 100 kg

DRUGS (4)
  1. ZESTORETIC [Concomitant]
     Active Substance: HYDROCHLOROTHIAZIDE\LISINOPRIL
     Indication: BLOOD PRESSURE MEASUREMENT
  2. ACTEMRA [Suspect]
     Active Substance: TOCILIZUMAB
     Indication: RHEUMATOID ARTHRITIS
     Route: 042
     Dates: start: 20110225, end: 20150728
  3. PREDNISONE. [Concomitant]
     Active Substance: PREDNISONE
     Route: 065
     Dates: end: 20150801
  4. MELOXICAM. [Concomitant]
     Active Substance: MELOXICAM

REACTIONS (20)
  - Blood cholesterol abnormal [Unknown]
  - Septic arthritis staphylococcal [Recovering/Resolving]
  - Rheumatoid arthritis [Not Recovered/Not Resolved]
  - Blood pressure increased [Unknown]
  - Drug ineffective [Unknown]
  - Joint swelling [Unknown]
  - Wound [Recovering/Resolving]
  - Urinary tract infection [Unknown]
  - Arthropod bite [Not Recovered/Not Resolved]
  - Arthritis infective [Recovering/Resolving]
  - Weight decreased [Not Recovered/Not Resolved]
  - Nasopharyngitis [Recovered/Resolved]
  - Tooth disorder [Unknown]
  - Wound [Not Recovered/Not Resolved]
  - Procedural haemorrhage [Unknown]
  - Arthritis infective [Unknown]
  - Knee arthroplasty [Recovered/Resolved]
  - Haematoma [Unknown]
  - Heart rate decreased [Unknown]
  - Post procedural infection [Unknown]

NARRATIVE: CASE EVENT DATE: 201205
